FAERS Safety Report 5779778-0 (Version None)
Quarter: 2008Q2

REPORT INFORMATION
  Report Type: 
  Country: None (occurrence: None)
  Receive Date: 20080618
  Receipt Date: 20080612
  Transmission Date: 20081010
  Serious: Yes (Hospitalization)
  Sender: FDA-Public Use
  Company Number: 2008SP011563

PATIENT
  Age: 57 Year
  Sex: Female

DRUGS (2)
  1. PEG-INTRON [Suspect]
     Indication: HEPATITIS POST TRANSFUSION
     Dosage: 80 MCG; QW; SC
     Route: 058
     Dates: start: 20070427, end: 20071217
  2. COPEGUS [Concomitant]

REACTIONS (1)
  - SPONDYLITIS [None]
